FAERS Safety Report 17263680 (Version 3)
Quarter: 2020Q1

REPORT INFORMATION
  Report Type: Spontaneous
  Country: US (occurrence: US)
  Receive Date: 20200113
  Receipt Date: 20200121
  Transmission Date: 20200409
  Serious: Yes (Other)
  Sender: FDA-Public Use
  Company Number: US-TAKEDA-2020TUS001819

PATIENT
  Age: 69 Year
  Sex: Female
  Weight: 53 kg

DRUGS (12)
  1. DARATUMUMAB [Suspect]
     Active Substance: DARATUMUMAB
     Indication: PLASMA CELL MYELOMA
     Dosage: 912 MILLIGRAM
     Route: 042
     Dates: start: 20170908, end: 20171124
  2. REVLIMID [Suspect]
     Active Substance: LENALIDOMIDE
     Dosage: 5 MILLIGRAM
     Route: 048
     Dates: start: 20180322
  3. REVLIMID [Suspect]
     Active Substance: LENALIDOMIDE
     Dosage: 5 MILLIGRAM, QD
     Route: 048
     Dates: start: 20191210, end: 20191222
  4. DEXAMETHASONE. [Suspect]
     Active Substance: DEXAMETHASONE
     Indication: PLASMA CELL MYELOMA
     Dosage: 20 MILLIGRAM
     Route: 065
     Dates: start: 20170908, end: 20190402
  5. DEXAMETHASONE. [Suspect]
     Active Substance: DEXAMETHASONE
     Dosage: 12 MILLIGRAM
     Route: 065
     Dates: start: 20190528
  6. REVLIMID [Suspect]
     Active Substance: LENALIDOMIDE
     Dosage: 10 MILLIGRAM
     Route: 048
     Dates: start: 20171024, end: 20180312
  7. VELCADE [Suspect]
     Active Substance: BORTEZOMIB
     Dosage: 1.95 MILLIGRAM
     Route: 058
     Dates: start: 20180302
  8. REVLIMID [Suspect]
     Active Substance: LENALIDOMIDE
     Indication: PLASMA CELL MYELOMA
     Dosage: 25 MILLIGRAM
     Route: 048
     Dates: start: 20170908
  9. VELCADE [Suspect]
     Active Substance: BORTEZOMIB
     Indication: PLASMA CELL MYELOMA
     Dosage: 2 MILLIGRAM
     Route: 058
     Dates: start: 20170908, end: 20170918
  10. VELCADE [Suspect]
     Active Substance: BORTEZOMIB
     Dosage: 2.04 MILLIGRAM
     Route: 058
     Dates: start: 20170929, end: 20171120
  11. DARATUMUMAB [Suspect]
     Active Substance: DARATUMUMAB
     Dosage: 840 MILLIGRAM
     Route: 042
     Dates: start: 20180227
  12. DARATUMUMAB [Suspect]
     Active Substance: DARATUMUMAB
     Dosage: 840 MILLIGRAM
     Route: 042
     Dates: start: 20191210, end: 20191210

REACTIONS (1)
  - Breast cancer [Not Recovered/Not Resolved]

NARRATIVE: CASE EVENT DATE: 20191205
